FAERS Safety Report 8237922-X (Version None)
Quarter: 2012Q1

REPORT INFORMATION
  Report Type: 
  Country: None (occurrence: None)
  Receive Date: 20120327
  Receipt Date: 20120315
  Transmission Date: 20120608
  Serious: Yes (Death, Other)
  Sender: FDA-Public Use
  Company Number: JP-PFIZER INC-2009314841

PATIENT
  Age: 73 Year
  Sex: Male
  Weight: 54 kg

DRUGS (5)
  1. CALCIUM LEVOFOLINATE [Concomitant]
     Indication: COLORECTAL CANCER
     Dosage: 300 MG/BODY (191.1 MG/M2), CYCLIC
     Route: 041
     Dates: start: 20090825, end: 20090929
  2. IRINOTECAN HCL [Suspect]
     Indication: COLORECTAL CANCER
     Dosage: 220 MG/BODY (140.1 MG/M2), CYCLIC
     Route: 041
     Dates: start: 20090825, end: 20090929
  3. AVASTIN [Suspect]
     Indication: COLORECTAL CANCER
     Dosage: 500 MG/BODY, CYCLIC
     Route: 041
     Dates: start: 20090825, end: 20090929
  4. FLUOROURACIL [Suspect]
     Dosage: 3600 MG/BODY/D1-2 (2293 MG/M2/D1-2), CYCLIC
     Route: 041
     Dates: start: 20090825, end: 20090929
  5. FLUOROURACIL [Suspect]
     Indication: COLORECTAL CANCER
     Dosage: 600 MG/BODY (382.2 MG/M2), CYCLIC
     Route: 040
     Dates: start: 20090825, end: 20090929

REACTIONS (3)
  - NEUTROPENIA [None]
  - LEUKOPENIA [None]
  - MELAENA [None]
